FAERS Safety Report 7175541-7 (Version None)
Quarter: 2010Q4

REPORT INFORMATION
  Report Type: 
  Country: None (occurrence: None)
  Receive Date: 20101220
  Receipt Date: 20100319
  Transmission Date: 20110411
  Serious: No
  Sender: FDA-Public Use
  Company Number: US-AMGEN-TCS400924

PATIENT

DRUGS (1)
  1. ENBREL [Suspect]
     Indication: RHEUMATOID ARTHRITIS
     Dosage: 25 MG, QWK
     Route: 058
     Dates: start: 20001201

REACTIONS (6)
  - BLOOD IMMUNOGLOBULIN G DECREASED [None]
  - BURNING SENSATION [None]
  - IMMUNE SYSTEM DISORDER [None]
  - INJECTION SITE PAIN [None]
  - ORAL FUNGAL INFECTION [None]
  - PARAESTHESIA [None]
